FAERS Safety Report 5128314-0 (Version None)
Quarter: 2006Q4

REPORT INFORMATION
  Report Type: 
  Country: None (occurrence: None)
  Receive Date: 20061011
  Receipt Date: 20060928
  Transmission Date: 20070319
  Serious: Yes (Other)
  Sender: FDA-Public Use
  Company Number: 2006118243

PATIENT
  Sex: 0

DRUGS (2)
  1. VFEND [Suspect]
  2. FLUCONAZOLE [Suspect]
     Dosage: 400  MG (400 MG, 1 IN 1 D)

REACTIONS (1)
  - CANDIDIASIS [None]
